FAERS Safety Report 10311758 (Version 2)
Quarter: 2014Q3

REPORT INFORMATION
  Report Type: Spontaneous
  Country: US (occurrence: None)
  Receive Date: 20140715
  Receipt Date: 20140820
  Transmission Date: 20150326
  Serious: Yes (Disabling, Other)
  Sender: FDA-Public Use
  Company Number: DEP_02181_2014

PATIENT
  Age: 78 Year
  Sex: Female
  Weight: 113.4 kg

DRUGS (6)
  1. GRALISE [Suspect]
     Active Substance: GABAPENTIN
     Indication: OFF LABEL USE
     Dosage: SAMPLE PACK, WITH THE EVENING MEAL ORAL,
     Route: 048
     Dates: start: 20140630, end: 20140701
  2. CARDIZEM [Concomitant]
     Active Substance: DILTIAZEM HYDROCHLORIDE
  3. NORVASC [Concomitant]
     Active Substance: AMLODIPINE BESYLATE
  4. NADOLOL. [Concomitant]
     Active Substance: NADOLOL
  5. GRALISE [Suspect]
     Active Substance: GABAPENTIN
     Indication: PAIN IN EXTREMITY
     Dosage: SAMPLE PACK, WITH THE EVENING MEAL ORAL,
     Route: 048
     Dates: start: 20140630, end: 20140701
  6. HYDROCHLOROTHIAZIDE. [Concomitant]
     Active Substance: HYDROCHLOROTHIAZIDE

REACTIONS (3)
  - Gait disturbance [None]
  - Movement disorder [None]
  - Activities of daily living impaired [None]

NARRATIVE: CASE EVENT DATE: 20140701
